FAERS Safety Report 6874459-4 (Version None)
Quarter: 2010Q3

REPORT INFORMATION
  Report Type: 
  Country: None (occurrence: None)
  Receive Date: 20100722
  Receipt Date: 20100722
  Transmission Date: 20110219
  Serious: No
  Sender: FDA-Public Use
  Company Number: None

PATIENT
  Sex: Female

DRUGS (1)
  1. SUMATRIPTAN SUCCINATE (IMITREX) [Suspect]
     Dosage: INJECTABLE
     Route: 011

REACTIONS (9)
  - ANGER [None]
  - ANXIETY [None]
  - BURNING SENSATION [None]
  - CHEST PAIN [None]
  - HYPERTENSION [None]
  - MEDICATION ERROR [None]
  - PALPITATIONS [None]
  - REFUSAL OF TREATMENT BY PATIENT [None]
  - WRONG TECHNIQUE IN DRUG USAGE PROCESS [None]
